FAERS Safety Report 4494242-7 (Version None)
Quarter: 2004Q4

REPORT INFORMATION
  Report Type: 
  Country: None (occurrence: None)
  Receive Date: 20041104
  Receipt Date: 20041104
  Transmission Date: 20050328
  Serious: Yes (Hospitalization)
  Sender: FDA-Public Use
  Company Number: None

PATIENT
  Age: 57 Year
  Sex: Male
  Weight: 83 kg

DRUGS (1)
  1. EFALIZUMAB [Suspect]
     Indication: PSORIASIS
     Dosage: 90MG QWEEK SUBCUTANEO
     Route: 058
     Dates: start: 20040402, end: 20041026

REACTIONS (3)
  - COUGH [None]
  - HEADACHE [None]
  - PYREXIA [None]
